FAERS Safety Report 18874227 (Version 1)
Quarter: 2021Q1

REPORT INFORMATION
  Report Type: Report from Study
  Country: AR (occurrence: AR)
  Receive Date: 20210210
  Receipt Date: 20210210
  Transmission Date: 20210420
  Serious: Yes (Hospitalization)
  Sender: FDA-Public Use
  Company Number: AR-TAKEDA-2021TUS008080

PATIENT
  Age: 11 Year
  Sex: Male

DRUGS (2)
  1. FACTOR VIII INHIBITOR BYPASSING FRACTION; BAXJECT II NF [Suspect]
     Active Substance: ANTI-INHIBITOR COAGULANT COMPLEX
     Dosage: 3000 INTERNATIONAL UNIT, QD
     Route: 065
  2. FACTOR VIII INHIBITOR BYPASSING FRACTION; BAXJECT II NF [Suspect]
     Active Substance: ANTI-INHIBITOR COAGULANT COMPLEX
     Indication: PROPHYLAXIS
     Dosage: 2000 INTERNATIONAL UNIT, 3/WEEK
     Route: 042

REACTIONS (1)
  - Limb injury [Recovered/Resolved]

NARRATIVE: CASE EVENT DATE: 20210119
